FAERS Safety Report 9520697 (Version 2)
Quarter: 2013Q4

REPORT INFORMATION
  Report Type: Spontaneous
  Country: IT (occurrence: IT)
  Receive Date: 20130913
  Receipt Date: 20131031
  Transmission Date: 20140711
  Serious: Yes (Death, Hospitalization)
  Sender: FDA-Public Use
  Company Number: IT-BRISTOL-MYERS SQUIBB COMPANY-19279819

PATIENT
  Age: 86 Year
  Sex: Female
  Weight: 80 kg

DRUGS (3)
  1. COUMADIN TABS 5 MG [Suspect]
     Indication: PULMONARY EMBOLISM
     Dosage: 1DF:1 UNIT.
     Route: 048
     Dates: start: 20120101, end: 20130719
  2. RAMIPRIL [Concomitant]
  3. METFORMIN [Concomitant]

REACTIONS (5)
  - Cerebral haemorrhage [Fatal]
  - Bronchopneumonia [Fatal]
  - Subarachnoid haemorrhage [Not Recovered/Not Resolved]
  - Subdural haemorrhage [Not Recovered/Not Resolved]
  - Altered state of consciousness [Not Recovered/Not Resolved]
